FAERS Safety Report 14982200 (Version 1)
Quarter: 2018Q2

REPORT INFORMATION
  Report Type: Spontaneous
  Country: PH (occurrence: PH)
  Receive Date: 20180607
  Receipt Date: 20180607
  Transmission Date: 20180711
  Serious: Yes (Death, Other)
  Sender: FDA-Public Use
  Company Number: PH-BRISTOL-MYERS SQUIBB COMPANY-BMS-2018-050944

PATIENT
  Age: 55 Year
  Sex: Female

DRUGS (1)
  1. ELIQUIS [Suspect]
     Active Substance: APIXABAN
     Indication: PRODUCT USED FOR UNKNOWN INDICATION
     Dosage: UNK
     Route: 065

REACTIONS (3)
  - Ischaemic stroke [Unknown]
  - Carotid artery occlusion [Unknown]
  - Death [Fatal]
